FAERS Safety Report 10041959 (Version 1)
Quarter: 2014Q1

REPORT INFORMATION
  Report Type: Report from Study
  Country: US (occurrence: US)
  Receive Date: 20140327
  Receipt Date: 20140327
  Transmission Date: 20141002
  Serious: Yes (Hospitalization)
  Sender: FDA-Public Use
  Company Number: US-JNJFOC-20140315131

PATIENT
  Age: 52 Year
  Sex: Male

DRUGS (5)
  1. REMICADE [Suspect]
     Indication: COLITIS ULCERATIVE
     Route: 042
  2. SIMPONI [Suspect]
     Indication: COLITIS ULCERATIVE
     Dosage: THIRD DOSE.
     Route: 058
  3. SIMPONI [Suspect]
     Indication: COLITIS ULCERATIVE
     Route: 058
     Dates: start: 201311
  4. HUMIRA [Suspect]
     Indication: COLITIS ULCERATIVE
     Route: 065
  5. PURINETHOL [Concomitant]
     Indication: COLITIS ULCERATIVE
     Route: 065

REACTIONS (3)
  - Peritonitis [Recovered/Resolved]
  - Bacteraemia [Recovered/Resolved]
  - Hypotension [Recovered/Resolved]
